FAERS Safety Report 19345778 (Version 1)
Quarter: 2021Q2

REPORT INFORMATION
  Report Type: Report from Study
  Country: US (occurrence: US)
  Receive Date: 20210531
  Receipt Date: 20210531
  Transmission Date: 20210717
  Serious: Yes (Other)
  Sender: FDA-Public Use
  Company Number: US-JNJFOC-A-US2019-197314

PATIENT
  Age: 81 Year
  Sex: Female
  Weight: 59.41 kg

DRUGS (5)
  1. MACITENTAN [Suspect]
     Active Substance: MACITENTAN
     Route: 048
  2. ORENITRAM [Concomitant]
     Active Substance: TREPROSTINIL
  3. MACITENTAN [Suspect]
     Active Substance: MACITENTAN
     Dosage: 10 MG, QD
     Route: 048
  4. DILTIAZEM. [Concomitant]
     Active Substance: DILTIAZEM
  5. MACITENTAN [Suspect]
     Active Substance: MACITENTAN
     Indication: PULMONARY ARTERIAL HYPERTENSION
     Dosage: 10 MG
     Route: 048

REACTIONS (16)
  - Laboratory test abnormal [Unknown]
  - Oxygen saturation decreased [Unknown]
  - Head discomfort [Unknown]
  - Nephropathy [Not Recovered/Not Resolved]
  - Extra dose administered [Unknown]
  - Renal impairment [Unknown]
  - Nasal congestion [Unknown]
  - Blood iron decreased [Not Recovered/Not Resolved]
  - Muscle strain [Unknown]
  - Sciatica [Not Recovered/Not Resolved]
  - Feeling abnormal [Unknown]
  - Dyspnoea exertional [Unknown]
  - Back pain [Unknown]
  - Macular degeneration [Unknown]
  - Asthenia [Not Recovered/Not Resolved]
  - Haemoglobin decreased [Unknown]
